FAERS Safety Report 25253507 (Version 1)
Quarter: 2025Q2

REPORT INFORMATION
  Report Type: Spontaneous
  Country: CN (occurrence: CN)
  Receive Date: 20250430
  Receipt Date: 20250430
  Transmission Date: 20250716
  Serious: Yes (Death, Other)
  Sender: STRIDES
  Company Number: CN-STRIDES ARCOLAB LIMITED-2025SP005104

PATIENT
  Age: 32 Year
  Sex: Male

DRUGS (12)
  1. ETOPOSIDE [Suspect]
     Active Substance: ETOPOSIDE
     Indication: Lung cancer metastatic
     Route: 065
     Dates: start: 202212, end: 202302
  2. ETOPOSIDE [Suspect]
     Active Substance: ETOPOSIDE
     Route: 065
     Dates: start: 202309, end: 202310
  3. DOXORUBICIN [Suspect]
     Active Substance: DOXORUBICIN
     Indication: Lung cancer metastatic
     Route: 065
     Dates: start: 202312
  4. CARBOPLATIN [Suspect]
     Active Substance: CARBOPLATIN
     Indication: Lung cancer metastatic
     Route: 065
     Dates: start: 202212, end: 202302
  5. CARBOPLATIN [Suspect]
     Active Substance: CARBOPLATIN
     Route: 065
     Dates: start: 202307, end: 202309
  6. CARBOPLATIN [Suspect]
     Active Substance: CARBOPLATIN
     Route: 065
     Dates: start: 202309, end: 202310
  7. SINTILIMAB [Suspect]
     Active Substance: SINTILIMAB
     Indication: Lung cancer metastatic
     Route: 065
     Dates: start: 202212, end: 202302
  8. SINTILIMAB [Suspect]
     Active Substance: SINTILIMAB
     Route: 065
     Dates: start: 202309, end: 202310
  9. TUCIDINOSTAT [Suspect]
     Active Substance: TUCIDINOSTAT
     Indication: Lung cancer metastatic
     Route: 065
     Dates: start: 202312
  10. PACLITAXEL [Concomitant]
     Active Substance: PACLITAXEL
     Indication: Lung cancer metastatic
     Route: 065
     Dates: start: 202307, end: 202309
  11. BEVACIZUMAB [Concomitant]
     Active Substance: BEVACIZUMAB
     Indication: Lung cancer metastatic
     Route: 065
     Dates: start: 202307, end: 202309
  12. NHWD 870 [Concomitant]
     Indication: Lung cancer metastatic
     Route: 065
     Dates: start: 202302, end: 202307

REACTIONS (7)
  - Acute respiratory failure [Fatal]
  - Condition aggravated [Fatal]
  - Disease progression [Unknown]
  - Metastases to spine [Unknown]
  - Paraplegia [Unknown]
  - Therapy partial responder [Unknown]
  - Off label use [Unknown]

NARRATIVE: CASE EVENT DATE: 20221201
